FAERS Safety Report 9781667 (Version 2)
Quarter: 2013Q4

REPORT INFORMATION
  Report Type: Spontaneous
  Country: JP (occurrence: JP)
  Receive Date: 20131224
  Receipt Date: 20131224
  Transmission Date: 20140711
  Serious: Yes (Hospitalization)
  Sender: FDA-Public Use
  Company Number: JP-BRISTOL-MYERS SQUIBB COMPANY-19882828

PATIENT
  Age: 73 Year
  Sex: Female

DRUGS (4)
  1. HYDREA CAPS 500 MG [Suspect]
     Indication: POLYCYTHAEMIA VERA
     Route: 048
  2. DEPAS [Concomitant]
     Route: 048
  3. BAYASPIRIN [Concomitant]
     Route: 048
  4. GASTER [Concomitant]
     Route: 048

REACTIONS (2)
  - Thrombotic microangiopathy [Not Recovered/Not Resolved]
  - Renal impairment [Unknown]
